FAERS Safety Report 18813825 (Version 7)
Quarter: 2022Q1

REPORT INFORMATION
  Report Type: Report from Study
  Country: AT (occurrence: None)
  Receive Date: 20210201
  Receipt Date: 20220220
  Transmission Date: 20220424
  Serious: Yes (Hospitalization)
  Sender: FDA-Public Use
  Company Number: AT-ROCHE-2757230

PATIENT
  Age: 70 Year
  Sex: Female
  Weight: 79 kg

DRUGS (18)
  1. MOSUNETUZUMAB [Suspect]
     Active Substance: MOSUNETUZUMAB
     Indication: Non-Hodgkin^s lymphoma
     Dosage: MOST RECENT DOSE PRIOR TO SAE ON 13/JAN/2021 AT THE DOSE OF 30 MG
     Route: 042
     Dates: start: 20201102
  2. POLATUZUMAB VEDOTIN [Suspect]
     Active Substance: POLATUZUMAB VEDOTIN
     Indication: Non-Hodgkin^s lymphoma
     Dosage: MOST RECENT DOSE ON 13/JAN/2021 AT THE DOSE OF 142 MG
     Route: 042
     Dates: start: 20201102
  3. CYCLOPHOSPHAMIDE [Suspect]
     Active Substance: CYCLOPHOSPHAMIDE
     Indication: Non-Hodgkin^s lymphoma
     Dosage: MOST RECENT DOSE PRIOR TO SAE ON 13/JAN/2021 AT THE DOSE OF 1398 MG
     Route: 042
     Dates: start: 20201102
  4. DOXORUBICIN [Suspect]
     Active Substance: DOXORUBICIN
     Indication: Non-Hodgkin^s lymphoma
     Dosage: MOST RECENT DOSE ON 13/JAN/2021 AT THE DOSE OF 97 MG
     Route: 042
     Dates: start: 20201102
  5. PREDNISONE [Suspect]
     Active Substance: PREDNISONE
     Indication: Non-Hodgkin^s lymphoma
     Dosage: MOST RECENT DOSE ON 17/JAN/2021 AT THE DOSE OF 100 MG
     Route: 048
     Dates: start: 20201102
  6. ENAC HEXAL [Concomitant]
     Route: 048
  7. DAFLON [Concomitant]
     Route: 048
  8. ALLOPURINOL [Concomitant]
     Active Substance: ALLOPURINOL
     Route: 048
     Dates: start: 202010
  9. FILGRASTIM [Concomitant]
     Active Substance: FILGRASTIM
     Indication: Prophylaxis
     Route: 058
     Dates: start: 20201226, end: 20201230
  10. FILGRASTIM [Concomitant]
     Active Substance: FILGRASTIM
     Route: 058
     Dates: start: 20210117, end: 20210121
  11. CEFEPIME HYDROCHLORIDE [Concomitant]
     Active Substance: CEFEPIME HYDROCHLORIDE
     Route: 042
     Dates: start: 20210126, end: 20210205
  12. UNASYN [Concomitant]
     Active Substance: AMPICILLIN SODIUM\SULBACTAM SODIUM
     Route: 048
     Dates: start: 20210124, end: 20210125
  13. ZOFRAN [Concomitant]
     Active Substance: ONDANSETRON HYDROCHLORIDE
     Route: 048
     Dates: start: 202011, end: 202103
  14. MESNA [Concomitant]
     Active Substance: MESNA
     Dosage: 400 OTHER
     Route: 048
     Dates: start: 20201102, end: 20210303
  15. MIRTAZAPINE [Concomitant]
     Active Substance: MIRTAZAPINE
     Route: 048
     Dates: start: 202102, end: 202103
  16. DIPHENHYDRAMINE HYDROCHLORIDE [Concomitant]
     Active Substance: DIPHENHYDRAMINE HYDROCHLORIDE
     Route: 042
     Dates: start: 20201102, end: 20210303
  17. ACETAMINOPHEN [Concomitant]
     Active Substance: ACETAMINOPHEN
     Route: 048
     Dates: start: 20201102, end: 20210303
  18. CALCIUM CHLORIDE\MAGNESIUM CHLORIDE\POTASSIUM CHLORIDE\SODIUM ACETATE\ [Concomitant]
     Active Substance: CALCIUM CHLORIDE\MAGNESIUM CHLORIDE\POTASSIUM CHLORIDE\SODIUM ACETATE\SODIUM CHLORIDE
     Route: 042
     Dates: start: 20201102, end: 20210303

REACTIONS (1)
  - Klebsiella infection [Recovered/Resolved]

NARRATIVE: CASE EVENT DATE: 20210124
